FAERS Safety Report 24251132 (Version 1)
Quarter: 2024Q3

REPORT INFORMATION
  Report Type: Report from Study
  Country: US (occurrence: US)
  Receive Date: 20240826
  Receipt Date: 20240826
  Transmission Date: 20241016
  Serious: Yes (Hospitalization)
  Sender: BAUSCH AND LOMB
  Company Number: US-BAUSCH-BL-2024-012725

PATIENT
  Age: 53 Year
  Sex: Male
  Weight: 70.37 kg

DRUGS (1)
  1. SILIQ [Suspect]
     Active Substance: BRODALUMAB
     Indication: Psoriasis
     Dosage: 210 MG/1.5 ML, INJECT 210MG SUBCUTANEOUSLY AT WEEK 0, 1 AND 2 AS DIRECTED
     Route: 058
     Dates: start: 201806

REACTIONS (1)
  - Blood glucose increased [Unknown]

NARRATIVE: CASE EVENT DATE: 20240819
